FAERS Safety Report 15722939 (Version 1)
Quarter: 2018Q4

REPORT INFORMATION
  Report Type: Spontaneous
  Country: US (occurrence: US)
  Receive Date: 20181214
  Receipt Date: 20181214
  Transmission Date: 20190205
  Serious: No
  Sender: FDA-Public Use
  Company Number: US-B.I. PHARMACEUTICALS,INC./RIDGEFIELD-2018-BI-059465

PATIENT
  Sex: Female

DRUGS (1)
  1. GILOTRIF [Suspect]
     Active Substance: AFATINIB
     Indication: NON-SMALL CELL LUNG CANCER
     Dosage: ONCE A DAY;  FORM STRENGTH: 30 MG; FORMULATION: TABLET?NR(NOT REPORTED) ?DRUG WITHDRAWN
     Route: 048

REACTIONS (1)
  - Respiratory syncytial virus infection [Not Recovered/Not Resolved]
